FAERS Safety Report 6786624-5 (Version None)
Quarter: 2010Q2

REPORT INFORMATION
  Report Type: 
  Country: None (occurrence: None)
  Receive Date: 20100623
  Receipt Date: 20100621
  Transmission Date: 20101027
  Serious: Yes (Hospitalization)
  Sender: FDA-Public Use
  Company Number: US-ELI_LILLY_AND_COMPANY-US200906005627

PATIENT
  Sex: Female
  Weight: 117.91 kg

DRUGS (29)
  1. BYETTA [Suspect]
     Dosage: 5 UG, 2/D
     Route: 058
     Dates: start: 20060101, end: 20080101
  2. LANTUS [Concomitant]
     Indication: DIABETES MELLITUS
     Dosage: UNK, EACH EVENING
     Route: 058
  3. NOVOLOG [Concomitant]
     Indication: DIABETES MELLITUS
     Dosage: UNK, 2/D
     Route: 058
  4. METFORMIN [Concomitant]
     Indication: DIABETES MELLITUS
     Dosage: 500 MG, UNKNOWN
  5. ACTOS [Concomitant]
     Indication: DIABETES MELLITUS
     Dosage: 15 MG, UNKNOWN
  6. METOPROLOL /00376902/ [Concomitant]
     Dosage: 50 MG, 2/D
     Route: 048
  7. FOSINOPRIL SODIUM [Concomitant]
     Dosage: 40 MG, UNKNOWN
  8. POTASSIUM CHLORIDE [Concomitant]
     Dosage: 10 MEQ, UNKNOWN
  9. GABAPENTIN [Concomitant]
     Dosage: 600 MG, EVERY 8 HRS
     Route: 048
  10. ASPIRIN [Concomitant]
     Dosage: 81 MG, UNKNOWN
  11. NORVASC [Concomitant]
     Dosage: 5 MG, DAILY (1/D)
  12. TRICOR [Concomitant]
     Dosage: 145 MG, UNKNOWN
  13. FAMOTIDINE [Concomitant]
     Dosage: 20 MG, UNKNOWN
  14. AMBIEN CR [Concomitant]
     Dosage: 12.5 MG, DAILY (1/D)
     Route: 048
  15. CIPROFLOXACIN [Concomitant]
     Dosage: 500 MG, UNKNOWN
  16. PREVACID [Concomitant]
     Dosage: 30 MG, UNKNOWN
  17. ZOCOR [Concomitant]
     Dosage: 10 MG, DAILY (1/D)
  18. NAPROXEN [Concomitant]
     Dosage: 500 MG, UNKNOWN
  19. ALTACE [Concomitant]
     Dosage: 10 MG, UNKNOWN
  20. ROXICET [Concomitant]
     Dosage: UNK, UNKNOWN
  21. CYMBALTA [Concomitant]
     Dosage: 30 MG, UNKNOWN
  22. METHOCARBAMOL [Concomitant]
     Dosage: 500 MG, UNKNOWN
  23. GEMFIBROZIL [Concomitant]
     Dosage: 600 MG, UNKNOWN
  24. NEXIUM [Concomitant]
     Dosage: 20 MG, UNKNOWN
  25. AMITRIPTYLINE [Concomitant]
     Dosage: 25 MG, UNKNOWN
  26. SALMETEROL XINAFOATE [Concomitant]
     Dosage: UNK, 2/D
     Route: 055
  27. FLUTICASONE PROPIONATE [Concomitant]
     Dosage: 50 UG, DAILY (1/D)
  28. PRAVACHOL [Concomitant]
     Dosage: UNK, UNKNOWN
  29. LYRICA [Concomitant]
     Dosage: UNK, UNKNOWN

REACTIONS (7)
  - ABDOMINAL PAIN [None]
  - BILE DUCT OBSTRUCTION [None]
  - DIARRHOEA [None]
  - HEADACHE [None]
  - OFF LABEL USE [None]
  - PANCREATITIS [None]
  - RENAL INJURY [None]
